FAERS Safety Report 12762705 (Version 1)
Quarter: 2016Q3

REPORT INFORMATION
  Report Type: Spontaneous
  Country: US (occurrence: US)
  Receive Date: 20160915
  Receipt Date: 20160915
  Transmission Date: 20161109
  Serious: No
  Sender: FDA-Public Use
  Company Number: None

PATIENT
  Age: 37 Year
  Sex: Female

DRUGS (1)
  1. ENBREL [Suspect]
     Active Substance: ETANERCEPT
     Indication: SPINAL OSTEOARTHRITIS
     Route: 058
     Dates: start: 20160713, end: 20160805

REACTIONS (12)
  - Inflammation [None]
  - Back pain [None]
  - Pain in extremity [None]
  - Rash [None]
  - Feeling abnormal [None]
  - Pruritus [None]
  - Emotional disorder [None]
  - Myalgia [None]
  - Musculoskeletal stiffness [None]
  - Mood swings [None]
  - Sleep disorder [None]
  - Erythema [None]

NARRATIVE: CASE EVENT DATE: 20160805
